FAERS Safety Report 7495241-3 (Version None)
Quarter: 2011Q2

REPORT INFORMATION
  Report Type: 
  Country: None (occurrence: None)
  Receive Date: 20110522
  Receipt Date: 20110509
  Transmission Date: 20111010
  Serious: Yes (Other)
  Sender: FDA-Public Use
  Company Number: US-ELI_LILLY_AND_COMPANY-US201004003684

PATIENT
  Sex: Female

DRUGS (15)
  1. FORTEO [Suspect]
     Dosage: 20 UG, DAILY (1/D)
     Route: 058
  2. ATENOLOL [Concomitant]
     Indication: HYPERTENSION
     Dosage: UNK, DAILY (1/D)
  3. CALCIUM CARBONATE [Concomitant]
     Indication: BONE DISORDER
     Dosage: 1500 U, UNK
  4. FORTEO [Suspect]
     Dosage: 20 UG, QD
     Route: 058
  5. DIOVAN [Concomitant]
     Indication: HYPERTENSION
     Dosage: UNK, DAILY (1/D)
  6. VITAMIN D [Concomitant]
     Indication: BONE DISORDER
     Dosage: 4000 U, UNK
  7. FOLIC ACID [Concomitant]
     Dosage: UNK, DAILY (1/D)
  8. FORTEO [Suspect]
     Indication: OSTEOPOROSIS
     Dosage: 20 UG, DAILY (1/D)
     Route: 058
     Dates: start: 20091101
  9. CRESTOR [Concomitant]
     Dosage: UNK, DAILY (1/D)
  10. LEFLUNOMIDE [Concomitant]
     Dosage: UNK, DAILY (1/D)
  11. PLAVIX [Concomitant]
     Dosage: UNK, DAILY (1/D)
  12. ASPIRIN [Concomitant]
     Indication: ANTICOAGULANT THERAPY
     Dosage: 325 MG, DAILY (1/D)
  13. METHOTREXATE [Concomitant]
     Dosage: UNK, DAILY (1/D)
  14. ACETAMINOPHEN [Concomitant]
     Indication: MUSCULOSKELETAL STIFFNESS
     Dosage: UNK, DAILY (1/D)
  15. ARAVA [Concomitant]
     Dosage: 10 MG, UNK

REACTIONS (8)
  - THYROIDECTOMY [None]
  - THROAT CANCER [None]
  - OROPHARYNGEAL PAIN [None]
  - FEELING ABNORMAL [None]
  - COUGH [None]
  - CARDIAC OPERATION [None]
  - BRONCHITIS [None]
  - NASOPHARYNGITIS [None]
